FAERS Safety Report 9849039 (Version 1)
Quarter: 2014Q1

REPORT INFORMATION
  Report Type: Spontaneous
  Country: US (occurrence: None)
  Receive Date: 20140124
  Receipt Date: 20140124
  Transmission Date: 20141002
  Serious: Yes (Hospitalization)
  Sender: FDA-Public Use
  Company Number: None

PATIENT
  Age: 76 Year
  Sex: Female

DRUGS (1)
  1. TASIGNA (AMN107) CAPSULE, 200 MG [Suspect]
     Route: 048
     Dates: start: 20100215

REACTIONS (3)
  - Abdominal pain [None]
  - Dyspnoea [None]
  - Chest pain [None]
